FAERS Safety Report 18962028 (Version 1)
Quarter: 2021Q1

REPORT INFORMATION
  Report Type: Spontaneous
  Country: US (occurrence: US)
  Receive Date: 20210302
  Receipt Date: 20210302
  Transmission Date: 20210420
  Serious: No
  Sender: FDA-Public Use
  Company Number: US-PURDUE PHARMA-USA-2020-0195146

PATIENT

DRUGS (1)
  1. ADHANSIA XR [Suspect]
     Active Substance: METHYLPHENIDATE HYDROCHLORIDE
     Indication: PRODUCT USED FOR UNKNOWN INDICATION
     Dosage: 25 MG, UNK
     Route: 048

REACTIONS (7)
  - Skin haemorrhage [Unknown]
  - Dysarthria [Unknown]
  - Tremor [Unknown]
  - Dermatillomania [Unknown]
  - Anger [Unknown]
  - Tic [Unknown]
  - Anxiety [Unknown]
